FAERS Safety Report 9416382 (Version 1)
Quarter: 2013Q3

REPORT INFORMATION
  Report Type: Spontaneous
  Country: DE (occurrence: None)
  Receive Date: 20130718
  Receipt Date: 20130718
  Transmission Date: 20140515
  Serious: Yes (Disabling)
  Sender: FDA-Public Use
  Company Number: GER/GER/13/0031765

PATIENT
  Age: 46 Year
  Sex: Female
  Weight: 96 kg

DRUGS (1)
  1. VENLAFAXINE [Suspect]
     Indication: DEPRESSION
     Route: 048
     Dates: start: 20130508, end: 20130620

REACTIONS (3)
  - Tremor [None]
  - Muscle twitching [None]
  - Gait disturbance [None]
